FAERS Safety Report 12165487 (Version 1)
Quarter: 2016Q1

REPORT INFORMATION
  Report Type: Spontaneous
  Country: BR (occurrence: BR)
  Receive Date: 20160309
  Receipt Date: 20160309
  Transmission Date: 20160526
  Serious: Yes (Other)
  Sender: FDA-Public Use
  Company Number: BR-ABBVIE-16K-020-1575681-00

PATIENT
  Sex: Female
  Weight: 54 kg

DRUGS (5)
  1. HUMIRA [Suspect]
     Active Substance: ADALIMUMAB
     Indication: RHEUMATOID ARTHRITIS
     Route: 058
  2. MABTHERA [Suspect]
     Active Substance: RITUXIMAB
     Indication: RHEUMATOID ARTHRITIS
     Route: 042
     Dates: start: 20150518
  3. METHOTREXATE [Concomitant]
     Active Substance: METHOTREXATE
     Indication: ARTHRITIS
  4. MABTHERA [Suspect]
     Active Substance: RITUXIMAB
     Route: 042
     Dates: start: 20150604, end: 201510
  5. PREDSIN [Concomitant]
     Indication: ARTHRITIS
     Route: 048

REACTIONS (5)
  - Malaise [Unknown]
  - Nausea [Not Recovered/Not Resolved]
  - Oesophageal disorder [Unknown]
  - Abdominal pain upper [Not Recovered/Not Resolved]
  - Invasive breast carcinoma [Not Recovered/Not Resolved]
